FAERS Safety Report 6691208-3 (Version None)
Quarter: 2010Q2

REPORT INFORMATION
  Report Type: 
  Country: None (occurrence: None)
  Receive Date: 20100422
  Receipt Date: 20100413
  Transmission Date: 20101027
  Serious: No
  Sender: FDA-Public Use
  Company Number: 2009BI005866

PATIENT
  Sex: Female

DRUGS (3)
  1. TYSABRI [Suspect]
     Indication: MULTIPLE SCLEROSIS
     Route: 042
     Dates: start: 20071130, end: 20080407
  2. TYSABRI [Suspect]
     Route: 042
     Dates: start: 20080917, end: 20081022
  3. TYSABRI [Suspect]
     Route: 042
     Dates: start: 20090102

REACTIONS (5)
  - ANXIETY [None]
  - CYSTITIS [None]
  - MEMORY IMPAIRMENT [None]
  - MIGRAINE [None]
  - WEIGHT DECREASED [None]
